FAERS Safety Report 4999000-2 (Version None)
Quarter: 2006Q1

REPORT INFORMATION
  Report Type: 
  Country: None (occurrence: None)
  Receive Date: 20060315
  Receipt Date: 20060202
  Transmission Date: 20060701
  Serious: Yes (Other)
  Sender: FDA-Public Use
  Company Number: 435244

PATIENT
  Age: 58 Year
  Sex: Female

DRUGS (3)
  1. BONIVA [Suspect]
     Indication: OSTEOPOROSIS
     Dosage: 150 MG 1 PER MONTH ORAL
     Route: 048
     Dates: start: 20051001
  2. CALTRATE (CALCIUM CARBONATE) [Concomitant]
  3. CENTRUM (MINERALS NOS/MULTIVITAMIN NOS) [Concomitant]

REACTIONS (6)
  - ABDOMINAL PAIN UPPER [None]
  - ALOPECIA [None]
  - DRUG ADMINISTRATION ERROR [None]
  - HAIR TEXTURE ABNORMAL [None]
  - HYPOAESTHESIA [None]
  - PARAESTHESIA [None]
